FAERS Safety Report 18198429 (Version 1)
Quarter: 2020Q3

REPORT INFORMATION
  Report Type: Spontaneous
  Country: US (occurrence: US)
  Receive Date: 20200826
  Receipt Date: 20200826
  Transmission Date: 20201103
  Serious: Yes (Other)
  Sender: FDA-Public Use
  Company Number: None

PATIENT
  Age: 78 Year
  Sex: Male
  Weight: 72 kg

DRUGS (6)
  1. ALLOPURINOL 300 MG. [Suspect]
     Active Substance: ALLOPURINOL
     Indication: BLOOD URIC ACID INCREASED
     Dosage: ?          QUANTITY:1 TABLET(S);?
     Route: 048
  2. B?12 SUBLINGUAL [Concomitant]
     Active Substance: CYANOCOBALAMIN
  3. CO ?Q10 [Concomitant]
  4. IMBRUVICA [Suspect]
     Active Substance: IBRUTINIB
     Indication: CHRONIC LYMPHOCYTIC LEUKAEMIA
     Dosage: ?          QUANTITY:1 TABLET(S);?
     Route: 048
  5. MAGNESIUM [Concomitant]
     Active Substance: MAGNESIUM
  6. IMBRUVICA CAPSULES [Concomitant]

REACTIONS (9)
  - Lip ulceration [None]
  - Peripheral swelling [None]
  - Allergic reaction to excipient [None]
  - Joint swelling [None]
  - Tongue blistering [None]
  - Blood blister [None]
  - Venous haemorrhage [None]
  - Application site hypersensitivity [None]
  - Stomatitis [None]

NARRATIVE: CASE EVENT DATE: 20200515
